FAERS Safety Report 14836652 (Version 2)
Quarter: 2018Q2

REPORT INFORMATION
  Report Type: Report from Study
  Country: NZ (occurrence: NZ)
  Receive Date: 20180502
  Receipt Date: 20180504
  Transmission Date: 20180711
  Serious: Yes (Life-Threatening, Hospitalization, Other)
  Sender: FDA-Public Use
  Company Number: NZ-MYLANLABS-2018M1026196

PATIENT
  Age: 54 Year
  Sex: Male
  Weight: 95.1 kg

DRUGS (14)
  1. CLOZARIL [Suspect]
     Active Substance: CLOZAPINE
     Indication: SCHIZOPHRENIA
     Dosage: 12.5 MG, PM
     Route: 048
     Dates: start: 20180227, end: 20180227
  2. CLOZARIL [Suspect]
     Active Substance: CLOZAPINE
     Dosage: 50 MG, PM
     Route: 048
     Dates: start: 20180304, end: 20180304
  3. CLOZARIL [Suspect]
     Active Substance: CLOZAPINE
     Dosage: 12.5 MG, AM
     Route: 048
     Dates: start: 20180301, end: 20180301
  4. CLOZARIL [Suspect]
     Active Substance: CLOZAPINE
     Dosage: 25 MG, BID
     Route: 048
     Dates: start: 20180302, end: 20180302
  5. CLOZARIL [Suspect]
     Active Substance: CLOZAPINE
     Dosage: 50 MG, PM
     Route: 048
     Dates: start: 20180303, end: 20180303
  6. CLOZARIL [Suspect]
     Active Substance: CLOZAPINE
     Dosage: 75 MG, PM
     Route: 048
     Dates: start: 20180305, end: 20180305
  7. CLOZARIL [Suspect]
     Active Substance: CLOZAPINE
     Dosage: 25 MG, PM
     Route: 048
     Dates: start: 20180301, end: 20180301
  8. CLOZARIL [Suspect]
     Active Substance: CLOZAPINE
     Dosage: 75 MG, AM
     Route: 048
     Dates: start: 20180306, end: 20180306
  9. CLOZARIL [Suspect]
     Active Substance: CLOZAPINE
     Dosage: 50 MG, AM
     Route: 048
     Dates: start: 20180304, end: 20180304
  10. CLOZARIL [Suspect]
     Active Substance: CLOZAPINE
     Dosage: 75 MG, PM
     Route: 048
     Dates: start: 20180306, end: 20180306
  11. CLOZARIL [Suspect]
     Active Substance: CLOZAPINE
     Dosage: 50 MG, AM
     Route: 048
     Dates: start: 20180305, end: 20180305
  12. CLOZARIL [Suspect]
     Active Substance: CLOZAPINE
     Dosage: 150 MG, PM
     Route: 048
     Dates: start: 20180307, end: 20180317
  13. CLOZARIL [Suspect]
     Active Substance: CLOZAPINE
     Dosage: 25 MG, AM
     Route: 048
     Dates: start: 20180303, end: 20180303
  14. CLOZARIL [Suspect]
     Active Substance: CLOZAPINE
     Dosage: 12.5 MG, BID
     Route: 048
     Dates: start: 20180228, end: 20180228

REACTIONS (6)
  - Troponin increased [Unknown]
  - Myocarditis [Recovered/Resolved]
  - Ventricular dysfunction [Unknown]
  - Eosinophil count increased [Unknown]
  - Ejection fraction decreased [Unknown]
  - Cardiomyopathy [Recovered/Resolved]

NARRATIVE: CASE EVENT DATE: 20180315
